FAERS Safety Report 6669501-X (Version None)
Quarter: 2010Q2

REPORT INFORMATION
  Report Type: 
  Country: None (occurrence: None)
  Receive Date: 20100406
  Receipt Date: 20100330
  Transmission Date: 20101027
  Serious: Yes (Other)
  Sender: FDA-Public Use
  Company Number: PHHY2010CA19384

PATIENT
  Sex: Male

DRUGS (2)
  1. EXELON [Suspect]
     Dosage: UNK
     Route: 062
     Dates: start: 20090318
  2. EXELON [Suspect]
     Route: 062

REACTIONS (1)
  - SYNCOPE [None]
